FAERS Safety Report 8594158 (Version 3)
Quarter: 2012Q4

REPORT INFORMATION
  Report Type: Report from Study
  Country: JP (occurrence: JP)
  Receive Date: 20120604
  Receipt Date: 20121231
  Transmission Date: 20130627
  Serious: Yes (Death, Hospitalization)
  Sender: FDA-Public Use
  Company Number: JP-ROCHE-1074169

PATIENT
  Age: 75 Year
  Sex: Male

DRUGS (2)
  1. ALTEPLASE [Suspect]
     Indication: EMBOLIC STROKE
     Route: 042
     Dates: start: 20110929, end: 20110929
  2. RADICUT [Suspect]
     Indication: EMBOLIC STROKE
     Route: 041
     Dates: start: 20110929, end: 20111001

REACTIONS (2)
  - Cerebral infarction [Fatal]
  - Haemorrhagic infarction [Not Recovered/Not Resolved]
